FAERS Safety Report 17237057 (Version 1)
Quarter: 2019Q4

REPORT INFORMATION
  Report Type: Spontaneous
  Country: US (occurrence: US)
  Receive Date: 20191211
  Receipt Date: 20191211
  Transmission Date: 20200122
  Serious: No
  Sender: FDA-Public Use
  Company Number: None

PATIENT
  Age: 59 Year
  Sex: Female

DRUGS (2)
  1. ENBREL [Suspect]
     Active Substance: ETANERCEPT
     Dosage: 50MG/ML CART 1X A WEEK
     Route: 058
     Dates: start: 20191211
  2. OTEZLA [Concomitant]
     Active Substance: APREMILAST

REACTIONS (5)
  - Loss of personal independence in daily activities [None]
  - Pain [None]
  - Rash [None]
  - Condition aggravated [None]
  - Product dose omission [None]
